FAERS Safety Report 23509731 (Version 8)
Quarter: 2024Q4

REPORT INFORMATION
  Report Type: Report from Study
  Country: US (occurrence: US)
  Receive Date: 20240210
  Receipt Date: 20241227
  Transmission Date: 20250115
  Serious: Yes (Other)
  Sender: NOVARTIS
  Company Number: US-002147023-NVSC2023US259472

PATIENT
  Age: 30 Year
  Sex: Female

DRUGS (1)
  1. KESIMPTA [Suspect]
     Active Substance: OFATUMUMAB
     Indication: Multiple sclerosis
     Dosage: 20 MG, QMO
     Route: 058

REACTIONS (18)
  - Multiple sclerosis relapse [Unknown]
  - Autoimmune disorder [Unknown]
  - Generalised tonic-clonic seizure [Recovering/Resolving]
  - Systemic lupus erythematosus [Unknown]
  - Chest injury [Unknown]
  - Asthma [Recovering/Resolving]
  - Stress [Not Recovered/Not Resolved]
  - Gait disturbance [Unknown]
  - Fall [Unknown]
  - Contusion [Unknown]
  - Peripheral swelling [Unknown]
  - Hypoaesthesia [Unknown]
  - Migraine [Recovered/Resolved]
  - Illness [Unknown]
  - Dyspnoea [Unknown]
  - Cough [Unknown]
  - Peroneal nerve palsy [Not Recovered/Not Resolved]
  - Muscular weakness [Unknown]

NARRATIVE: CASE EVENT DATE: 20231204
